FAERS Safety Report 19155044 (Version 1)
Quarter: 2021Q2

REPORT INFORMATION
  Report Type: Spontaneous
  Country: JP (occurrence: JP)
  Receive Date: 20210419
  Receipt Date: 20210419
  Transmission Date: 20210717
  Serious: Yes (Other)
  Sender: FDA-Public Use
  Company Number: JP-PFIZER INC-2021240438

PATIENT
  Age: 78 Year
  Sex: Female

DRUGS (7)
  1. CELECOX [Suspect]
     Active Substance: CELECOXIB
     Indication: ANALGESIC THERAPY
     Dosage: 200 MG, DAILY (2 TABLETS)
     Route: 048
     Dates: start: 20210224, end: 20210226
  2. CELECOX [Suspect]
     Active Substance: CELECOXIB
     Indication: PAIN IN EXTREMITY
  3. CELECOX [Suspect]
     Active Substance: CELECOXIB
     Indication: ARTHRALGIA
  4. REBAMIPIDE [Suspect]
     Active Substance: REBAMIPIDE
     Indication: PAIN IN EXTREMITY
  5. DICLOFENAC [Suspect]
     Active Substance: DICLOFENAC
     Dosage: AS NEEDED
     Dates: start: 20191228, end: 20210224
  6. REBAMIPIDE [Suspect]
     Active Substance: REBAMIPIDE
     Indication: ARTHRALGIA
     Dosage: 2 TABLETS
     Route: 048
     Dates: start: 20210224
  7. CELECOX [Suspect]
     Active Substance: CELECOXIB
     Indication: PERIARTHRITIS

REACTIONS (3)
  - Rash [Not Recovered/Not Resolved]
  - Gait disturbance [Recovered/Resolved]
  - Hypoaesthesia [Recovered/Resolved]

NARRATIVE: CASE EVENT DATE: 20210226
